FAERS Safety Report 4743874-7 (Version None)
Quarter: 2005Q3

REPORT INFORMATION
  Report Type: 
  Country: None (occurrence: None)
  Receive Date: 20050809
  Receipt Date: 20050801
  Transmission Date: 20060218
  Serious: Yes (Hospitalization)
  Sender: FDA-Public Use
  Company Number: 2005109396

PATIENT
  Age: 1 Month
  Sex: Male
  Weight: 2.8 kg

DRUGS (4)
  1. XANAX [Suspect]
     Indication: ILL-DEFINED DISORDER
  2. PAROXETINE HYDROCHLORIDE [Suspect]
     Indication: ILL-DEFINED DISORDER
  3. TOBACCO (NICOTIANA TABACUM) [Suspect]
     Indication: ILL-DEFINED DISORDER
  4. CANNABIS (CANNABIS) [Suspect]
     Indication: ILL-DEFINED DISORDER

REACTIONS (12)
  - CONVULSION NEONATAL [None]
  - DRUG EXPOSURE DURING PREGNANCY [None]
  - FEEDING DISORDER NEONATAL [None]
  - HYPERBILIRUBINAEMIA NEONATAL [None]
  - HYPERTONIA NEONATAL [None]
  - HYPOTONIA NEONATAL [None]
  - NEONATAL DISORDER [None]
  - PAIN [None]
  - SLEEP DISORDER [None]
  - TENSION [None]
  - VOMITING NEONATAL [None]
  - WEIGHT DECREASE NEONATAL [None]
